FAERS Safety Report 17202227 (Version 4)
Quarter: 2020Q3

REPORT INFORMATION
  Report Type: Spontaneous
  Country: US (occurrence: US)
  Receive Date: 20191226
  Receipt Date: 20200727
  Transmission Date: 20201102
  Serious: Yes (Other)
  Sender: FDA-Public Use
  Company Number: US-PFIZER INC-2019551399

PATIENT
  Age: 51 Year
  Sex: Female

DRUGS (3)
  1. XELJANZ XR [Suspect]
     Active Substance: TOFACITINIB CITRATE
     Dosage: 11 MG, DAILY (DO NOT BREAK/TAKE 1 TABLET BY MOUTH DAILY)
     Route: 048
     Dates: start: 20191127
  2. XELJANZ XR [Suspect]
     Active Substance: TOFACITINIB CITRATE
     Dosage: 11 MG
     Dates: start: 20200406
  3. XELJANZ XR [Suspect]
     Active Substance: TOFACITINIB CITRATE
     Indication: ARTHROPATHY
     Dosage: 11 MG, UNK
     Dates: start: 20191125, end: 201911

REACTIONS (3)
  - Thrombosis [Unknown]
  - Sinus disorder [Unknown]
  - Acne [Unknown]

NARRATIVE: CASE EVENT DATE: 2019
